FAERS Safety Report 10379721 (Version 2)
Quarter: 2014Q3

REPORT INFORMATION
  Report Type: Spontaneous
  Country: AU (occurrence: AU)
  Receive Date: 20140812
  Receipt Date: 20140812
  Transmission Date: 20150326
  Serious: Yes (Disabling)
  Sender: FDA-Public Use
  Company Number: AU-US-EMD SERONO, INC.-7310297

PATIENT
  Age: 48 Year
  Sex: Female

DRUGS (1)
  1. REBIF [Suspect]
     Active Substance: INTERFERON BETA-1A
     Indication: PRODUCT USED FOR UNKNOWN INDICATION

REACTIONS (7)
  - Burning sensation [Unknown]
  - Asthenia [Unknown]
  - Neck pain [Unknown]
  - Head discomfort [Unknown]
  - Weight increased [Unknown]
  - Injection site bruising [Unknown]
  - Influenza like illness [Unknown]
